FAERS Safety Report 4580195-X (Version None)
Quarter: 2005Q1

REPORT INFORMATION
  Report Type: 
  Country: None (occurrence: None)
  Receive Date: 20050211
  Receipt Date: 20041206
  Transmission Date: 20050727
  Serious: Yes (Life-Threatening, Hospitalization)
  Sender: FDA-Public Use
  Company Number: GXKR2004US00666

PATIENT
  Age: 66 Year
  Sex: Male

DRUGS (11)
  1. SULFAMETHOXAZOLE + TRIMETHOPRIM (NGX) SULFAMETHOXAZOLE, TRIMETHOPRIM [Suspect]
     Indication: PULMONARY TUBERCULOSIS
     Dosage: 1200-6000 MG, Q6H, INTRAVENOUS
     Route: 042
  2. ACETYLSALICYLIC ACID SRT [Concomitant]
  3. IBUPROFEN [Concomitant]
  4. TRANSDERM NITRO (GLYCERYL TRINITRATE) [Concomitant]
  5. ANTIBIOTICS (NO INGREDIENTS/SUBSTANCES) [Concomitant]
  6. CEFTIZOXIME (CEFTIZOXIME) [Concomitant]
  7. ERYTHROMYCIN [Concomitant]
  8. ZIDOVUDINE [Concomitant]
  9. LAMIVUDINE [Concomitant]
  10. SAQUINAVIR [Concomitant]
  11. PENTAMIDINE (PENTAMIDINE) [Concomitant]

REACTIONS (4)
  - HYPOTENSION [None]
  - METHAEMOGLOBINAEMIA [None]
  - TACHYCARDIA [None]
  - TACHYPNOEA [None]
